FAERS Safety Report 22120797 (Version 2)
Quarter: 2023Q2

REPORT INFORMATION
  Report Type: Spontaneous
  Country: US (occurrence: US)
  Receive Date: 20230321
  Receipt Date: 20230522
  Transmission Date: 20230722
  Serious: Yes (Hospitalization, Other)
  Sender: FDA-Public Use
  Company Number: US-BEH-2023156468

PATIENT
  Sex: Male

DRUGS (1)
  1. HUMATE-P [Suspect]
     Active Substance: HUMAN COAGULATION FACTOR VIII/VON WILLEBRAND FACTOR COMPLEX
     Indication: Von Willebrand^s disease
     Route: 065

REACTIONS (6)
  - Depressed level of consciousness [Unknown]
  - Subarachnoid haemorrhage [Unknown]
  - Haemorrhage [Unknown]
  - Fall [Unknown]
  - Skin laceration [Unknown]
  - Head injury [Unknown]
